FAERS Safety Report 19167799 (Version 9)
Quarter: 2021Q4

REPORT INFORMATION
  Report Type: Spontaneous
  Country: JP (occurrence: JP)
  Receive Date: 20210422
  Receipt Date: 20211222
  Transmission Date: 20220304
  Serious: Yes (Other)
  Sender: FDA-Public Use
  Company Number: JP-CELGENE-JPN-20210403640

PATIENT
  Sex: Female

DRUGS (3)
  1. REVLIMID [Suspect]
     Active Substance: LENALIDOMIDE
     Indication: Accidental exposure to product
     Dosage: UNKNOWN
     Route: 062
     Dates: start: 201912
  2. MAGNESIUM OXIDE [Concomitant]
     Active Substance: MAGNESIUM OXIDE
     Indication: Constipation
     Dosage: UNKNOWN
     Route: 065
     Dates: start: 20210420
  3. NERIZA [Concomitant]
     Indication: Haemorrhoids
     Dosage: UNKNOWN
     Route: 061
     Dates: start: 20210917, end: 20211102

REACTIONS (1)
  - Exposure during pregnancy [Unknown]
